FAERS Safety Report 10080946 (Version 2)
Quarter: 2014Q2

REPORT INFORMATION
  Report Type: Spontaneous
  Country: US (occurrence: US)
  Receive Date: 20140416
  Receipt Date: 20140429
  Transmission Date: 20141212
  Serious: Yes (Other)
  Sender: FDA-Public Use
  Company Number: US-AMGEN-USASP2014025887

PATIENT
  Age: 77 Year
  Sex: Female
  Weight: 65.31 kg

DRUGS (5)
  1. ASA [Concomitant]
  2. PROLIA [Suspect]
     Indication: PRODUCT USED FOR UNKNOWN INDICATION
     Dosage: UNK
     Route: 030
     Dates: start: 20140128
  3. ATORVASTATIN [Concomitant]
  4. SYNTHROID [Concomitant]
  5. IRBESARTAN [Concomitant]

REACTIONS (4)
  - Dementia [Unknown]
  - Confusional state [Unknown]
  - Inappropriate schedule of drug administration [Unknown]
  - Pruritus [Unknown]
